FAERS Safety Report 22661012 (Version 1)
Quarter: 2023Q2

REPORT INFORMATION
  Report Type: Report from Study
  Country: BR (occurrence: BR)
  Receive Date: 20230630
  Receipt Date: 20230630
  Transmission Date: 20230722
  Serious: Yes (Other)
  Sender: FDA-Public Use
  Company Number: BR-ABBOTT-2023A-1365918

PATIENT
  Sex: Female

DRUGS (4)
  1. DEPAKOTE ER [Suspect]
     Active Substance: DIVALPROEX SODIUM
     Indication: Seizure
     Dosage: AT NIGHT, BEFORE SLEEPING, TOGETHER WITH OTHERS (MEDICATIONS)
     Route: 048
     Dates: start: 2023, end: 2023
  2. DEPAKOTE ER [Suspect]
     Active Substance: DIVALPROEX SODIUM
     Indication: Seizure
     Route: 048
     Dates: start: 2023
  3. TRAZODONE HYDROCHLORIDE [Concomitant]
     Active Substance: TRAZODONE HYDROCHLORIDE
     Indication: Product used for unknown indication
  4. REVIVAN [Concomitant]
     Indication: Product used for unknown indication
     Dosage: TWICE TIMES AT NIGHT

REACTIONS (2)
  - Psychotic disorder [Unknown]
  - Product prescribing error [Unknown]
